FAERS Safety Report 11895802 (Version 1)
Quarter: 2016Q1

REPORT INFORMATION
  Report Type: Spontaneous
  Country: CA (occurrence: CA)
  Receive Date: 20160107
  Receipt Date: 20160107
  Transmission Date: 20160526
  Serious: Yes (Other)
  Sender: FDA-Public Use
  Company Number: CA-TEVA-622378ACC

PATIENT
  Age: 62 Year
  Sex: Male
  Weight: 113.5 kg

DRUGS (9)
  1. QUETIAPINE XR [Suspect]
     Active Substance: QUETIAPINE
     Indication: PSYCHOTIC DISORDER
     Dosage: 300 MILLIGRAM DAILY;
     Route: 048
  2. TOPAMAX [Concomitant]
     Active Substance: TOPIRAMATE
  3. METFORMIN [Concomitant]
     Active Substance: METFORMIN HYDROCHLORIDE
  4. DIABETA [Concomitant]
     Active Substance: GLYBURIDE
  5. ELTROXIN [Concomitant]
     Active Substance: LEVOTHYROXINE
  6. VASOTEC [Concomitant]
     Active Substance: ENALAPRIL MALEATE
  7. LIPITOR [Concomitant]
     Active Substance: ATORVASTATIN CALCIUM
  8. NORVASC [Concomitant]
     Active Substance: AMLODIPINE BESYLATE
  9. PANTOLOC [Concomitant]
     Active Substance: PANTOPRAZOLE SODIUM

REACTIONS (2)
  - Product substitution issue [Recovered/Resolved]
  - Loss of consciousness [Recovered/Resolved]
